FAERS Safety Report 5869143-X (Version None)
Quarter: 2008Q3

REPORT INFORMATION
  Report Type: 
  Country: None (occurrence: None)
  Receive Date: 20080903
  Receipt Date: 20080826
  Transmission Date: 20090109
  Serious: Yes (Other)
  Sender: FDA-Public Use
  Company Number: DE-TYCO HEALTHCARE/MALLINCKRODT-T200801408

PATIENT

DRUGS (1)
  1. PHOSPHOCOL P32 [Suspect]
     Indication: RADIOTHERAPY
     Dosage: 1 GBQ, SINGLE
     Dates: start: 20080822, end: 20080822

REACTIONS (2)
  - ERYTHEMA [None]
  - OPEN WOUND [None]
